FAERS Safety Report 25369230 (Version 1)
Quarter: 2025Q2

REPORT INFORMATION
  Report Type: Spontaneous
  Country: US (occurrence: None)
  Receive Date: 20250527
  Receipt Date: 20250527
  Transmission Date: 20250716
  Serious: Yes (Other)
  Sender: FDA-CTU
  Company Number: None

PATIENT
  Age: 52 Year
  Sex: Male
  Weight: 160.65 kg

DRUGS (4)
  1. WEGOVY [Suspect]
     Active Substance: SEMAGLUTIDE
     Indication: Obesity
     Dosage: FREQUENCY : WEEKLY;?
     Route: 058
     Dates: start: 20240603, end: 20240915
  2. TESTOSTERONE [Concomitant]
     Active Substance: TESTOSTERONE
     Dates: start: 20211005
  3. LOSARTAN [Concomitant]
     Active Substance: LOSARTAN
     Dates: start: 20230321
  4. ALLOPURINOL [Concomitant]
     Active Substance: ALLOPURINOL
     Dates: start: 20211206, end: 20241112

REACTIONS (2)
  - Bile duct stone [None]
  - Cholangiocarcinoma [None]

NARRATIVE: CASE EVENT DATE: 20240912
